FAERS Safety Report 13775616 (Version 1)
Quarter: 2017Q3

REPORT INFORMATION
  Report Type: Spontaneous
  Country: US (occurrence: US)
  Receive Date: 20170721
  Receipt Date: 20170721
  Transmission Date: 20171127
  Serious: Yes (Other)
  Sender: FDA-Public Use
  Company Number: None

PATIENT
  Age: 69 Year
  Sex: Female
  Weight: 74.39 kg

DRUGS (13)
  1. OMEPRAZOLE. [Concomitant]
     Active Substance: OMEPRAZOLE
  2. FISH OIL [Concomitant]
     Active Substance: FISH OIL
  3. PROBIOTIC [Concomitant]
     Active Substance: PROBIOTICS NOS
  4. BABY SHAMPOO NOS [Concomitant]
     Active Substance: UNSPECIFIED INGREDIENT
  5. TRAMADOL HYDROCHLORIDE. [Suspect]
     Active Substance: TRAMADOL HYDROCHLORIDE
     Indication: PAIN
     Dosage: ?          QUANTITY:N?DZPI/IA TIE/Z) A;?
     Route: 048
     Dates: start: 20161214, end: 20161216
  6. ASPIRIN. [Concomitant]
     Active Substance: ASPIRIN
  7. ALPRAZOLAM. [Concomitant]
     Active Substance: ALPRAZOLAM
  8. GARLIC. [Concomitant]
     Active Substance: GARLIC
  9. TOBRAMYCIN/DEXAMETH SUS TAL-SA [Suspect]
     Active Substance: DEXAMETHASONE\TOBRAMYCIN
     Indication: EYE DISORDER
  10. SIMVASTATIN. [Concomitant]
     Active Substance: SIMVASTATIN
  11. CINNAMON. [Concomitant]
     Active Substance: CINNAMON
  12. MAGNESIUM [Concomitant]
     Active Substance: MAGNESIUM
  13. DANDRUFF SHAMPOO [Concomitant]
     Active Substance: PYRITHIONE ZINC

REACTIONS (3)
  - Hypersensitivity [None]
  - Vision blurred [None]
  - Eye swelling [None]

NARRATIVE: CASE EVENT DATE: 20161201
